FAERS Safety Report 23261325 (Version 6)
Quarter: 2025Q2

REPORT INFORMATION
  Report Type: Report from Study
  Country: US (occurrence: US)
  Receive Date: 20231205
  Receipt Date: 20250502
  Transmission Date: 20250716
  Serious: Yes (Other)
  Sender: TAKEDA
  Company Number: US-TAKEDA-2023TUS018332

PATIENT
  Sex: Female
  Weight: 40 kg

DRUGS (13)
  1. HUMAN IMMUNOGLOBULIN G [Suspect]
     Active Substance: HUMAN IMMUNOGLOBULIN G
     Indication: Immunodeficiency common variable
     Dosage: 7 GRAM, 1/WEEK
  2. JARDIANCE [Suspect]
     Active Substance: EMPAGLIFLOZIN
     Indication: Product used for unknown indication
  3. DIPHENHYDRAMINE [Concomitant]
     Active Substance: DIPHENHYDRAMINE
  4. VITAMIN D3 [Concomitant]
     Active Substance: CHOLECALCIFEROL
  5. ASPIRIN [Concomitant]
     Active Substance: ASPIRIN
  6. EPINEPHRINE [Concomitant]
     Active Substance: EPINEPHRINE
  7. VITAMIN C [Concomitant]
     Active Substance: ASCORBIC ACID
  8. IRON [Concomitant]
     Active Substance: IRON
  9. ACETAMINOPHEN [Concomitant]
     Active Substance: ACETAMINOPHEN
  10. Lmx [Concomitant]
  11. SPIRONOLACTONE [Concomitant]
     Active Substance: SPIRONOLACTONE
  12. METOPROLOL TARTRATE [Concomitant]
     Active Substance: METOPROLOL TARTRATE
  13. RITUXAN [Concomitant]
     Active Substance: RITUXIMAB

REACTIONS (9)
  - Platelet count decreased [Unknown]
  - Infusion site scar [Unknown]
  - Catheterisation cardiac [Unknown]
  - Weight decreased [Unknown]
  - Product dose omission issue [Unknown]
  - Joint dislocation [Unknown]
  - Lethargy [Unknown]
  - Infusion site pruritus [Unknown]
  - Infusion site erythema [Unknown]
